FAERS Safety Report 6831802-X (Version None)
Quarter: 2010Q3

REPORT INFORMATION
  Report Type: 
  Country: None (occurrence: None)
  Receive Date: 20100712
  Receipt Date: 20100630
  Transmission Date: 20110219
  Serious: Yes (Hospitalization)
  Sender: FDA-Public Use
  Company Number: ES-ELI_LILLY_AND_COMPANY-ES201007001522

PATIENT
  Sex: Female
  Weight: 75 kg

DRUGS (10)
  1. FORTEO [Suspect]
     Indication: OSTEOPOROSIS
     Dosage: 20 UG, DAILY (1/D)
     Route: 058
     Dates: start: 20100514
  2. VOLTAREN [Concomitant]
     Indication: SPINAL OSTEOARTHRITIS
     Dosage: 100 MG, DAILY (1/D)
     Route: 048
  3. ARCOXIA [Concomitant]
     Indication: SPINAL OSTEOARTHRITIS
     Dosage: 1 TABLET, DAILY (1/D)
     Route: 048
  4. SINGULAIR [Concomitant]
     Indication: ASTHMA
     Dosage: 1 PUFF, DAILY (1/D)
     Route: 055
  5. EXFORGE [Concomitant]
     Indication: HYPERTENSION
     Dosage: 1 TABLET, DAILY (1/D)
     Route: 048
  6. SPIRIVA [Concomitant]
     Indication: ASTHMA
     Dosage: 1 D/F, EACH EVENING
     Route: 055
     Dates: end: 20100609
  7. HIBOR [Concomitant]
     Indication: ANTICOAGULANT THERAPY
     Dosage: 3500 UI/1 INI, UNK
     Route: 058
     Dates: end: 20100601
  8. TERBASMIN /00199201/ [Concomitant]
     Indication: ASTHMA
     Dosage: 3 PUFFS, DAILY (1/D)
     Route: 055
  9. LEXATIN [Concomitant]
     Indication: ANXIETY
     Dosage: 1.5 MG, DAILY (1/D)
     Route: 048
  10. VALIUM [Concomitant]
     Indication: ANXIETY
     Dosage: 5 MG, DAILY (1/D)
     Route: 048
     Dates: end: 20100627

REACTIONS (1)
  - EPISTAXIS [None]
